FAERS Safety Report 6813428-7 (Version None)
Quarter: 2010Q3

REPORT INFORMATION
  Report Type: 
  Country: None (occurrence: None)
  Receive Date: 20100701
  Receipt Date: 20100629
  Transmission Date: 20110219
  Serious: Yes (Other)
  Sender: FDA-Public Use
  Company Number: KR-SANOFI-AVENTIS-2010SA037658

PATIENT
  Sex: Female

DRUGS (1)
  1. LANTUS [Suspect]
     Indication: DIABETES MELLITUS
     Dosage: 10-12 IU
     Route: 058
     Dates: start: 20090715

REACTIONS (3)
  - DECREASED APPETITE [None]
  - LOSS OF CONSCIOUSNESS [None]
  - TREMOR [None]
